FAERS Safety Report 25824936 (Version 2)
Quarter: 2025Q3

REPORT INFORMATION
  Report Type: Spontaneous
  Country: US (occurrence: US)
  Receive Date: 20250919
  Receipt Date: 20250922
  Transmission Date: 20251021
  Serious: No
  Sender: PFIZER
  Company Number: US-PFIZER INC-202500184810

PATIENT
  Age: 72 Year
  Sex: Female

DRUGS (1)
  1. PAXLOVID [Suspect]
     Active Substance: NIRMATRELVIR\RITONAVIR
     Indication: COVID-19 treatment

REACTIONS (6)
  - Vertigo [Unknown]
  - Nausea [Unknown]
  - Dizziness [Unknown]
  - Condition aggravated [Unknown]
  - Product taste abnormal [Unknown]
  - Dysgeusia [Not Recovered/Not Resolved]
